FAERS Safety Report 20768213 (Version 2)
Quarter: 2022Q2

REPORT INFORMATION
  Report Type: Spontaneous
  Country: CN (occurrence: CN)
  Receive Date: 20220429
  Receipt Date: 20220504
  Transmission Date: 20220721
  Serious: Yes (Other)
  Sender: FDA-Public Use
  Company Number: CN-BAUSCH-BL-2022-010456

PATIENT
  Age: 43 Year
  Sex: Female

DRUGS (1)
  1. DEXAMETHASONE [Suspect]
     Active Substance: DEXAMETHASONE
     Indication: Central nervous system infection
     Route: 065
     Dates: start: 202007

REACTIONS (1)
  - Mycobacterium chelonae infection [Recovered/Resolved]

NARRATIVE: CASE EVENT DATE: 20200101
